FAERS Safety Report 4282336-0 (Version None)
Quarter: 2004Q1

REPORT INFORMATION
  Report Type: 
  Country: None (occurrence: None)
  Receive Date: 20040112
  Receipt Date: 20031110
  Transmission Date: 20041129
  Serious: Yes (Hospitalization)
  Sender: FDA-Public Use
  Company Number: 351483

PATIENT
  Age: 36 Year
  Sex: Male
  Weight: 56.7 kg

DRUGS (1)
  1. ENFUVIRTIDE (ENFUVIRTIDE) 90 MG/ML [Suspect]
     Indication: HIV INFECTION
     Dosage: 90 MG 2 PER DAY SUBCUTANEOUS
     Route: 058
     Dates: start: 20030915

REACTIONS (9)
  - BRAIN CONTUSION [None]
  - DIFFICULTY IN WALKING [None]
  - DIZZINESS [None]
  - EYE MOVEMENT DISORDER [None]
  - HEMIPARESIS [None]
  - JC VIRUS INFECTION [None]
  - NAUSEA [None]
  - PROGRESSIVE MULTIFOCAL LEUKOENCEPHALOPATHY [None]
  - VISUAL DISTURBANCE [None]
